FAERS Safety Report 24327719 (Version 1)
Quarter: 2024Q3

REPORT INFORMATION
  Report Type: Spontaneous
  Country: US (occurrence: US)
  Receive Date: 20240917
  Receipt Date: 20240917
  Transmission Date: 20241017
  Serious: Yes (Other)
  Sender: ROCHE
  Company Number: US-ROCHE-10000079356

PATIENT
  Age: 50 Year
  Sex: Male

DRUGS (3)
  1. ATEZOLIZUMAB [Suspect]
     Active Substance: ATEZOLIZUMAB
     Indication: Neuroendocrine carcinoma
     Dosage: 6 CYCLES
     Route: 042
  2. CARBOPLATIN [Suspect]
     Active Substance: CARBOPLATIN
     Indication: Neuroendocrine carcinoma
     Route: 065
  3. ETOPOSIDE [Suspect]
     Active Substance: ETOPOSIDE
     Indication: Neuroendocrine carcinoma
     Dosage: DAYS 1-3 OF CYCLE
     Route: 065

REACTIONS (5)
  - Neutropenia [Unknown]
  - Anaemia [Unknown]
  - Neutrophil count decreased [Unknown]
  - Thrombocytopenia [Unknown]
  - Disease progression [Unknown]
